FAERS Safety Report 17508652 (Version 1)
Quarter: 2020Q1

REPORT INFORMATION
  Report Type: Report from Study
  Country: None (occurrence: US)
  Receive Date: 20200306
  Receipt Date: 20200306
  Transmission Date: 20200409
  Serious: Yes (Other)
  Sender: FDA-Public Use
  Company Number: US-ABBVIE-20K-163-3302666-00

PATIENT
  Sex: Male

DRUGS (1)
  1. CREON [Suspect]
     Active Substance: PANCRELIPASE AMYLASE\PANCRELIPASE LIPASE\PANCRELIPASE PROTEASE
     Indication: PRODUCT USED FOR UNKNOWN INDICATION
     Dosage: 2 CAPS THREE TIMES A DAY
     Route: 048
     Dates: start: 2018

REACTIONS (5)
  - Cholecystectomy [Unknown]
  - Neoplasm malignant [Unknown]
  - Leg amputation [Unknown]
  - Implantable defibrillator insertion [Unknown]
  - Limb operation [Unknown]
